FAERS Safety Report 7974409-3 (Version None)
Quarter: 2011Q4

REPORT INFORMATION
  Report Type: 
  Country: None (occurrence: None)
  Receive Date: 20111213
  Receipt Date: 20111202
  Transmission Date: 20120403
  Serious: Yes (Hospitalization)
  Sender: FDA-Public Use
  Company Number: FR-NOVOPROD-336320

PATIENT

DRUGS (9)
  1. REPAGLINIDE [Suspect]
     Dosage: UNK
  2. ASPIRIN [Concomitant]
  3. ATORVASTATIN CALCIUM [Suspect]
     Indication: PRODUCT USED FOR UNKNOWN INDICATION
     Dosage: UNK
     Route: 048
     Dates: start: 20110525, end: 20110624
  4. PANTOPRAZOLE [Suspect]
     Indication: PRODUCT USED FOR UNKNOWN INDICATION
     Dosage: UNK
     Route: 048
     Dates: start: 20110525, end: 20110612
  5. CORDARONE [Concomitant]
  6. ATORVASTATIN CALCIUM [Suspect]
     Dosage: UNK
  7. REPAGLINIDE [Suspect]
     Indication: TYPE 2 DIABETES MELLITUS
     Dosage: UNK
     Route: 048
     Dates: start: 20110525, end: 20110617
  8. CALCIPARINE [Concomitant]
  9. REPAGLINIDE [Suspect]
     Dosage: UNK
     Dates: end: 20110624

REACTIONS (4)
  - COLITIS ISCHAEMIC [None]
  - COLITIS [None]
  - PROCTOCOLITIS [None]
  - DIARRHOEA [None]
